FAERS Safety Report 21274764 (Version 2)
Quarter: 2022Q3

REPORT INFORMATION
  Report Type: Spontaneous
  Country: US (occurrence: US)
  Receive Date: 20220831
  Receipt Date: 20220913
  Transmission Date: 20221027
  Serious: No
  Sender: FDA-Public Use
  Company Number: US-INTRA-CELLULAR THERAPIES, INC.-2022ICT01069

PATIENT
  Age: 32 Year
  Sex: Female
  Weight: 99.32 kg

DRUGS (4)
  1. CAPLYTA [Suspect]
     Active Substance: LUMATEPERONE
     Indication: Mood swings
     Dosage: 42 MG PER NIGHT
     Route: 048
     Dates: start: 20220811, end: 20220811
  2. CAPLYTA [Suspect]
     Active Substance: LUMATEPERONE
     Indication: Hypomania
  3. CAPLYTA [Suspect]
     Active Substance: LUMATEPERONE
     Indication: Depression
  4. PHENTERMINE [Suspect]
     Active Substance: PHENTERMINE
     Dosage: 37.5 MG, 1X/DAY
     Dates: start: 20220804

REACTIONS (4)
  - Temperature regulation disorder [Recovered/Resolved]
  - Skin burning sensation [Unknown]
  - Rash [Recovered/Resolved]
  - Off label use [Recovered/Resolved]

NARRATIVE: CASE EVENT DATE: 20220811
